FAERS Safety Report 9297386 (Version 1)
Quarter: 2013Q2

REPORT INFORMATION
  Report Type: Spontaneous
  Country: DE (occurrence: DE)
  Receive Date: 20130520
  Receipt Date: 20130520
  Transmission Date: 20140414
  Serious: Yes (Hospitalization, Congenital Anomaly, Other)
  Sender: FDA-Public Use
  Company Number: DE-009507513-1305DEU006788

PATIENT
  Sex: 0

DRUGS (1)
  1. ZIENAM 500 [Suspect]
     Indication: STREPTOCOCCAL INFECTION
     Route: 064

REACTIONS (3)
  - Spine malformation [Unknown]
  - Congenital hearing disorder [Unknown]
  - Double outlet right ventricle [Unknown]
